FAERS Safety Report 8950930 (Version 2)
Quarter: 2013Q3

REPORT INFORMATION
  Report Type: Spontaneous
  Country: GB (occurrence: None)
  Receive Date: 20121128
  Receipt Date: 20130705
  Transmission Date: 20140515
  Serious: Yes (Disabling)
  Sender: FDA-Public Use
  Company Number: THQ2012A10438

PATIENT
  Age: 48 Year
  Sex: Male

DRUGS (6)
  1. LANSOPRAZOLE (LANSOPRAZOLE) [Suspect]
     Indication: PROPHYLAXIS AGAINST GASTROINTESTINAL ULCER
     Dosage: 15 MG  (15 MG, 1 IN 1 D),  PER ORAL
     Route: 048
     Dates: start: 20120528
  2. PREDNISOLONE [Suspect]
     Indication: PEMPHIGUS
     Dosage: 60 MG (60 MG, 1 IN 1 D)
  3. CORSODYL (CHLORHEXIDINE GLUCONATE) [Concomitant]
  4. GLIOQUINOL, BETAMETHASONE VALERATE [Concomitant]
  5. DERMOVATE (CLOBETASOL PROPRIONATE) [Concomitant]
  6. DERMOL (ISOPROPYL MYRISTATE, CHLORHEXIDINE HYDROCHLORIDE, BENZALKONIUM CHLORIDE, PARAFFIN, LIQUID) [Concomitant]

REACTIONS (4)
  - Temporomandibular joint syndrome [None]
  - Trismus [None]
  - Tremor [None]
  - Activities of daily living impaired [None]
